FAERS Safety Report 10215512 (Version 1)
Quarter: 2014Q2

REPORT INFORMATION
  Report Type: Spontaneous
  Country: US (occurrence: US)
  Receive Date: 20140604
  Receipt Date: 20140604
  Transmission Date: 20141212
  Serious: No
  Sender: FDA-Public Use
  Company Number: US-BIOGENIDEC-2014BI052602

PATIENT
  Age: 35 Year
  Sex: Female

DRUGS (8)
  1. TYSABRI [Suspect]
     Indication: MULTIPLE SCLEROSIS
     Route: 042
     Dates: start: 2012
  2. AVONEX [Concomitant]
     Indication: MULTIPLE SCLEROSIS
     Route: 030
     Dates: start: 20120324, end: 20120801
  3. PREDNISONE [Concomitant]
  4. PREDNISONE [Concomitant]
  5. PREDNISONE [Concomitant]
  6. PREDNISONE [Concomitant]
  7. PREDNISONE [Concomitant]
  8. PREDNISONE [Concomitant]
     Dates: start: 20140522

REACTIONS (5)
  - Anxiety [Unknown]
  - Dysstasia [Not Recovered/Not Resolved]
  - Loss of control of legs [Recovered/Resolved]
  - Urinary incontinence [Unknown]
  - Asthenia [Not Recovered/Not Resolved]
